FAERS Safety Report 10368888 (Version 1)
Quarter: 2014Q1

REPORT INFORMATION
  Report Type: Spontaneous
  Country: US (occurrence: None)
  Receive Date: 20140306
  Receipt Date: 20140306
  Transmission Date: 20141002
  Serious: Yes (Hospitalization, Other)
  Sender: FDA-Public Use
  Company Number: 163-21880-13091652

PATIENT
  Age: 65 Year
  Sex: Male
  Weight: 76.2 kg

DRUGS (9)
  1. REVLIMID (LENALIDOMIDE) (25 MILLIGRAM, CAPSULES) [Suspect]
     Indication: ACUTE MYELOID LEUKAEMIA
     Route: 048
     Dates: start: 20130727, end: 20130731
  2. REVLIMID (LENALIDOMIDE) (25 MILLIGRAM, CAPSULES) [Suspect]
     Indication: MYELODYSPLASTIC SYNDROME
     Route: 048
     Dates: start: 20130727, end: 20130731
  3. PRILOSEC (OMEPRAZOLE) [Concomitant]
  4. ZYRTEC (CETIRIZIE HYDRPCHLORIDE) [Concomitant]
  5. SUDAFED (PSEUDOEPHEDRINE HYDROCHLORIDE) [Concomitant]
  6. KCL (POTASSIUM CHLORIDE) [Concomitant]
  7. G-CSF (GRANULOCYTE COLONY STIMULATING FACTOR) [Concomitant]
  8. POTASSIUM (POTASSIUM) [Concomitant]
  9. MEN^S 50+ ADVANCED (MULTIVITAMINS) [Concomitant]

REACTIONS (2)
  - Febrile neutropenia [None]
  - Rash maculo-papular [None]
